FAERS Safety Report 22193660 (Version 1)
Quarter: 2023Q2

REPORT INFORMATION
  Report Type: Spontaneous
  Country: US (occurrence: US)
  Receive Date: 20230410
  Receipt Date: 20230410
  Transmission Date: 20230721
  Serious: No
  Sender: FDA-Public Use
  Company Number: US-PFIZER INC-PV202300064284

PATIENT
  Sex: Female

DRUGS (1)
  1. ABROCITINIB [Suspect]
     Active Substance: ABROCITINIB
     Indication: Hand dermatitis
     Dosage: UNK

REACTIONS (1)
  - Blood blister [Unknown]
